FAERS Safety Report 21801017 (Version 1)
Quarter: 2022Q4

REPORT INFORMATION
  Report Type: Spontaneous
  Country: CN (occurrence: CN)
  Receive Date: 20221230
  Receipt Date: 20221230
  Transmission Date: 20230113
  Serious: Yes (Hospitalization, Other)
  Sender: FDA-Public Use
  Company Number: CN-JNJFOC-20221259005

PATIENT
  Age: 71 Year
  Sex: Male
  Weight: 63 kg

DRUGS (2)
  1. ERLEADA [Suspect]
     Active Substance: APALUTAMIDE
     Indication: Prostate cancer
     Route: 048
     Dates: start: 20221216, end: 20221218
  2. ERLEADA [Suspect]
     Active Substance: APALUTAMIDE
     Route: 048
     Dates: start: 20221219, end: 20221223

REACTIONS (1)
  - Epidermolysis bullosa [Unknown]

NARRATIVE: CASE EVENT DATE: 20221201
